FAERS Safety Report 23880827 (Version 1)
Quarter: 2024Q2

REPORT INFORMATION
  Report Type: Spontaneous
  Country: US (occurrence: None)
  Receive Date: 20240521
  Receipt Date: 20240521
  Transmission Date: 20240717
  Serious: Yes (Other)
  Sender: FDA-Public Use
  Company Number: None

PATIENT
  Age: 30 Year
  Sex: Male

DRUGS (1)
  1. NUCALA [Suspect]
     Active Substance: MEPOLIZUMAB
     Indication: Eosinophilic granulomatosis with polyangiitis
     Dosage: FREQUENCY : MONTHLY;?

REACTIONS (5)
  - Oedema peripheral [None]
  - Oedema peripheral [None]
  - Dyspnoea [None]
  - Myalgia [None]
  - Asthenia [None]

NARRATIVE: CASE EVENT DATE: 20240519
